FAERS Safety Report 5528215-X (Version None)
Quarter: 2007Q4

REPORT INFORMATION
  Report Type: 
  Country: None (occurrence: None)
  Receive Date: 20071128
  Receipt Date: 20071116
  Transmission Date: 20080405
  Serious: Yes (Other)
  Sender: FDA-Public Use
  Company Number: DE-PFIZER INC-2007089668

PATIENT
  Sex: Female
  Weight: 54 kg

DRUGS (1)
  1. CHAMPIX [Suspect]
     Indication: SMOKING CESSATION THERAPY
     Route: 048
     Dates: start: 20071015, end: 20071018

REACTIONS (12)
  - ATRIOVENTRICULAR BLOCK FIRST DEGREE [None]
  - BACK PAIN [None]
  - CHEST PAIN [None]
  - COUGH [None]
  - DISSOCIATION [None]
  - DIZZINESS [None]
  - FEELING ABNORMAL [None]
  - HEART RATE ABNORMAL [None]
  - HEART RATE DECREASED [None]
  - INSOMNIA [None]
  - MYALGIA [None]
  - SINUS BRADYCARDIA [None]
